FAERS Safety Report 4962822-8 (Version None)
Quarter: 2006Q1

REPORT INFORMATION
  Report Type: 
  Country: None (occurrence: None)
  Receive Date: 20060331
  Receipt Date: 20060316
  Transmission Date: 20060701
  Serious: Yes (Life-Threatening, Hospitalization)
  Sender: FDA-Public Use
  Company Number: YEHQ20050447

PATIENT
  Age: 77 Year
  Sex: Female
  Weight: 93 kg

DRUGS (1)
  1. VESIKUR(SOLIFENACIN) TABLET, UNKNOWN [Suspect]
     Dosage: 5 MG ORAL
     Route: 048
     Dates: start: 20041210

REACTIONS (6)
  - ATRIOVENTRICULAR BLOCK COMPLETE [None]
  - ATRIOVENTRICULAR BLOCK SECOND DEGREE [None]
  - BRADYCARDIA [None]
  - CARDIAC FAILURE [None]
  - CARDIO-RESPIRATORY ARREST [None]
  - TORSADE DE POINTES [None]
